FAERS Safety Report 11748684 (Version 1)
Quarter: 2015Q4

REPORT INFORMATION
  Report Type: Spontaneous
  Country: BR (occurrence: BR)
  Receive Date: 20151117
  Receipt Date: 20151117
  Transmission Date: 20160304
  Serious: Yes (Hospitalization)
  Sender: FDA-Public Use
  Company Number: BR-AMGEN-BRASP2015096676

PATIENT
  Age: 57 Year
  Sex: Female
  Weight: 87 kg

DRUGS (3)
  1. ENBREL [Suspect]
     Active Substance: ETANERCEPT
     Indication: PSORIATIC ARTHROPATHY
     Dosage: 50 MG, ONCE WEEKLY
     Route: 058
     Dates: start: 20150601, end: 201508
  2. PREDNISONE. [Concomitant]
     Active Substance: PREDNISONE
     Dosage: 6 TABLETS OF 10MG A DAY
  3. METHOTREXATE [Concomitant]
     Active Substance: METHOTREXATE
     Indication: PSORIATIC ARTHROPATHY
     Dosage: 8 TABLETS OF 25 MG PER WEEK
     Dates: start: 2006

REACTIONS (3)
  - Pain [Not Recovered/Not Resolved]
  - Condition aggravated [Not Recovered/Not Resolved]
  - Cholecystitis [Unknown]

NARRATIVE: CASE EVENT DATE: 2015
